FAERS Safety Report 6308701-5 (Version None)
Quarter: 2009Q3

REPORT INFORMATION
  Report Type: 
  Country: None (occurrence: None)
  Receive Date: 20090813
  Receipt Date: 20090731
  Transmission Date: 20100115
  Serious: Yes (Other)
  Sender: FDA-Public Use
  Company Number: JP-JNJCH-2009019816

PATIENT
  Age: 66 Year
  Sex: Male

DRUGS (3)
  1. CETIRIZINE HYDROCHLORIDE [Suspect]
     Indication: GRANULOMA ANNULARE
     Dosage: TEXT:UNKNOWN
     Route: 048
     Dates: start: 20050201, end: 20050801
  2. FEXOFENADINE HYDROCHLORIDE [Suspect]
     Indication: GRANULOMA ANNULARE
     Dosage: TEXT:UNKNOWN
     Route: 048
  3. ALL OTHER THERAPEUTIC PRODUCTS [Concomitant]
     Indication: DRUG USE FOR UNKNOWN INDICATION
     Dosage: TEXT:UNSPECIFIED
     Route: 061

REACTIONS (3)
  - ASCITES [None]
  - JAUNDICE [None]
  - LIVER FUNCTION TEST ABNORMAL [None]
